FAERS Safety Report 23682951 (Version 1)
Quarter: 2024Q1

REPORT INFORMATION
  Report Type: Spontaneous
  Country: US (occurrence: None)
  Receive Date: 20240328
  Receipt Date: 20240328
  Transmission Date: 20240410
  Serious: Yes (Other)
  Sender: FDA-Public Use
  Company Number: US-ROCHE-3529773

PATIENT
  Sex: Female
  Weight: 93.07 kg

DRUGS (2)
  1. ALECENSA [Suspect]
     Active Substance: ALECTINIB HYDROCHLORIDE
     Indication: Lung neoplasm malignant
     Dosage: 600 MG PO BID ;ONGOING: YES
     Route: 048
     Dates: start: 20240113
  2. ROSUVASTATIN [Concomitant]
     Active Substance: ROSUVASTATIN
     Indication: Blood cholesterol increased
     Dosage: 20 MG PILL PO EVERY OTHER DAY
     Route: 048
     Dates: start: 202311

REACTIONS (3)
  - Thyroid cancer [Unknown]
  - Weight increased [Not Recovered/Not Resolved]
  - Malaise [Unknown]
